FAERS Safety Report 25451886 (Version 5)
Quarter: 2025Q4

REPORT INFORMATION
  Report Type: Spontaneous
  Country: US (occurrence: US)
  Receive Date: 20250618
  Receipt Date: 20251219
  Transmission Date: 20260118
  Serious: No
  Sender: SANOFI AVENTIS
  Company Number: US-SA-2025SA170587

PATIENT
  Age: 77 Year
  Sex: Female

DRUGS (1)
  1. DUPIXENT [Suspect]
     Active Substance: DUPILUMAB
     Indication: Asthma
     Dosage: 300 MG, QOW
     Route: 058

REACTIONS (7)
  - Muscular weakness [Unknown]
  - Tongue coated [Unknown]
  - Glossodynia [Unknown]
  - Urinary tract infection [Unknown]
  - Dysuria [Unknown]
  - Dry skin [Unknown]
  - Oral pain [Unknown]

NARRATIVE: CASE EVENT DATE: 20250101
